FAERS Safety Report 8483465-8 (Version None)
Quarter: 2012Q3

REPORT INFORMATION
  Report Type: 
  Country: None (occurrence: None)
  Receive Date: 20120702
  Receipt Date: 20120619
  Transmission Date: 20120928
  Serious: Yes (Hospitalization, Disabling)
  Sender: FDA-Public Use
  Company Number: FR-FRI-1000014090

PATIENT
  Sex: Female

DRUGS (2)
  1. ESCITALOPRAM [Suspect]
     Indication: DEPRESSIVE SYMPTOM
     Route: 048
  2. PANDEMRIX [Suspect]
     Indication: IMMUNISATION
     Route: 030
     Dates: start: 20091117, end: 20091117

REACTIONS (1)
  - TOLOSA-HUNT SYNDROME [None]
